FAERS Safety Report 9343642 (Version 1)
Quarter: 2013Q2

REPORT INFORMATION
  Report Type: Spontaneous
  Country: BR (occurrence: BR)
  Receive Date: 20130612
  Receipt Date: 20130612
  Transmission Date: 20140414
  Serious: Yes (Hospitalization)
  Sender: FDA-Public Use
  Company Number: BR-ROCHE-1232473

PATIENT
  Age: 22 Year
  Sex: Male
  Weight: 75 kg

DRUGS (1)
  1. ROACUTAN [Suspect]
     Indication: PRODUCT USED FOR UNKNOWN INDICATION
     Route: 048
     Dates: start: 201211, end: 201304

REACTIONS (5)
  - Pancreatitis [Unknown]
  - Colitis ulcerative [Unknown]
  - Pneumonia [Unknown]
  - Pilonidal cyst [Unknown]
  - Condition aggravated [Unknown]
